FAERS Safety Report 10038510 (Version 2)
Quarter: 2014Q1

REPORT INFORMATION
  Report Type: Spontaneous
  Country: MY (occurrence: MY)
  Receive Date: 20140326
  Receipt Date: 20140326
  Transmission Date: 20141002
  Serious: Yes (Other)
  Sender: FDA-Public Use
  Company Number: MY-PFIZER INC-2014020008

PATIENT
  Age: 15 Year
  Sex: Male
  Weight: 45 kg

DRUGS (2)
  1. DILANTIN [Suspect]
     Indication: EPILEPSY
     Dosage: 300 MG, 1X/DAY
     Route: 048
     Dates: start: 20120305, end: 20120326
  2. FOLIC ACID [Concomitant]
     Dosage: 5 MG, 1X/DAY
     Dates: start: 20120305, end: 20120326

REACTIONS (4)
  - Leukopenia [Not Recovered/Not Resolved]
  - Angioedema [Not Recovered/Not Resolved]
  - Erythema [Not Recovered/Not Resolved]
  - Urticaria [Not Recovered/Not Resolved]
